FAERS Safety Report 9281175 (Version 1)
Quarter: 2013Q2

REPORT INFORMATION
  Report Type: Spontaneous
  Country: US (occurrence: None)
  Receive Date: 20130508
  Receipt Date: 20130508
  Transmission Date: 20140414
  Serious: Yes (Hospitalization)
  Sender: FDA-Public Use
  Company Number: None

PATIENT
  Age: 83 Year
  Sex: Male
  Weight: 93.7 kg

DRUGS (16)
  1. WARFARIN [Suspect]
     Indication: ATRIAL FIBRILLATION
     Dosage: QD/MWF
     Route: 048
  2. WARFARIN [Suspect]
     Indication: MITRAL VALVE REPLACEMENT
     Dosage: QD/MWF
     Route: 048
  3. CALCIUM CARBONATE VITAMIN D [Concomitant]
  4. ENALAPRIL [Concomitant]
  5. FLUTICASONE [Concomitant]
  6. FOLIC ACID [Concomitant]
  7. ALENDRONATE [Concomitant]
  8. FUROSEMIDE [Concomitant]
  9. METOPROLOL [Concomitant]
  10. MULTIVITAMINS [Concomitant]
  11. POLYETHYLENE GLYCOL [Concomitant]
  12. MEMANTINE [Concomitant]
  13. TRAMADOL [Concomitant]
  14. SIMVASTATIN [Concomitant]
  15. SOLIFENANCIN [Concomitant]
  16. TAMSULOSIN [Concomitant]

REACTIONS (7)
  - Dysarthria [None]
  - Ataxia [None]
  - International normalised ratio increased [None]
  - Local swelling [None]
  - Contusion [None]
  - Sepsis [None]
  - Traumatic haematoma [None]
